FAERS Safety Report 6594958-2 (Version None)
Quarter: 2010Q1

REPORT INFORMATION
  Report Type: 
  Country: None (occurrence: None)
  Receive Date: 20100218
  Receipt Date: 20100218
  Transmission Date: 20100710
  Serious: No
  Sender: FDA-Public Use
  Company Number: None

PATIENT
  Age: 43 Year
  Sex: Male
  Weight: 112.9457 kg

DRUGS (1)
  1. TAMSULOSIN HCL [Suspect]
     Dosage: 0.4MG Q HS PO
     Route: 048

REACTIONS (3)
  - BACK PAIN [None]
  - INTERVERTEBRAL DISC DEGENERATION [None]
  - X-RAY ABNORMAL [None]
